FAERS Safety Report 16556865 (Version 1)
Quarter: 2019Q3

REPORT INFORMATION
  Report Type: Spontaneous
  Country: US (occurrence: US)
  Receive Date: 20190711
  Receipt Date: 20190711
  Transmission Date: 20191004
  Serious: No
  Sender: FDA-Public Use
  Company Number: US-TEVA-2019-US-1072455

PATIENT
  Sex: Female

DRUGS (1)
  1. FIORICET WITH CODEINE [Suspect]
     Active Substance: ACETAMINOPHEN\BUTALBITAL\CAFFEINE\CODEINE PHOSPHATE
     Indication: MIGRAINE
     Dosage: IMPRINTS: NAVY BLUE / GRAY / FIORICET / CODEINE / PROFILE OF FOUR HEADS IMAGE
     Route: 065

REACTIONS (1)
  - Drug ineffective [Unknown]
